FAERS Safety Report 15775931 (Version 2)
Quarter: 2019Q3

REPORT INFORMATION
  Report Type: Spontaneous
  Country: US (occurrence: US)
  Receive Date: 20181231
  Receipt Date: 20190805
  Transmission Date: 20191004
  Serious: No
  Sender: FDA-Public Use
  Company Number: US-BIO PRODUCTS LABORATORY LTD-2060706

PATIENT
  Sex: Male

DRUGS (3)
  1. IDEBENONE [Concomitant]
     Active Substance: IDEBENONE
  2. CEFTRIAXONE. [Suspect]
     Active Substance: CEFTRIAXONE
  3. GAMMAPLEX [Suspect]
     Active Substance: HUMAN IMMUNOGLOBULIN G
     Indication: OPTIC NEURITIS
     Route: 042

REACTIONS (2)
  - Drug ineffective for unapproved indication [Recovering/Resolving]
  - Off label use [Recovering/Resolving]
